FAERS Safety Report 4290897-0 (Version None)
Quarter: 2004Q1

REPORT INFORMATION
  Report Type: 
  Country: None (occurrence: None)
  Receive Date: 20040209
  Receipt Date: 20040129
  Transmission Date: 20041129
  Serious: Yes (Hospitalization)
  Sender: FDA-Public Use
  Company Number: 2004006582

PATIENT
  Age: 49 Year
  Sex: Female

DRUGS (2)
  1. RESCRIPTOR [Suspect]
     Indication: ILL-DEFINED DISORDER
     Dosage: BID, ORAL
     Route: 048
     Dates: start: 20030729, end: 20031203
  2. KALETRA [Suspect]
     Indication: ILL-DEFINED DISORDER
     Dosage: BID, ORAL
     Route: 048
     Dates: start: 20030630, end: 20031203

REACTIONS (7)
  - ABDOMINAL PAIN [None]
  - BLOOD CHOLESTEROL INCREASED [None]
  - BLOOD TEST ABNORMAL [None]
  - BLOOD TRIGLYCERIDES ABNORMAL [None]
  - BLOOD TRIGLYCERIDES INCREASED [None]
  - HYPERGLYCAEMIA [None]
  - JAUNDICE [None]
